FAERS Safety Report 7203337-6 (Version None)
Quarter: 2010Q4

REPORT INFORMATION
  Report Type: 
  Country: None (occurrence: None)
  Receive Date: 20101230
  Receipt Date: 20101221
  Transmission Date: 20110411
  Serious: Yes (Hospitalization)
  Sender: FDA-Public Use
  Company Number: JP-SP-2010-05814

PATIENT
  Sex: Male

DRUGS (5)
  1. IMMUCYST [Suspect]
     Indication: BLADDER CANCER
     Route: 043
     Dates: start: 20100902, end: 20100902
  2. CANDESARTAN CILEXETIL [Concomitant]
     Dosage: DAILY
     Route: 048
  3. GLIMEPIRIDE [Concomitant]
     Dosage: DAILY
     Route: 048
  4. ATORVASTATIN CALCIUM [Concomitant]
     Dosage: DAILY
     Route: 048
  5. AMLODIPINE BESILATE [Concomitant]
     Dosage: DAILY
     Route: 048

REACTIONS (5)
  - CHILLS [None]
  - MALAISE [None]
  - PLATELET COUNT DECREASED [None]
  - PYREXIA [None]
  - TUBERCULOSIS [None]
